FAERS Safety Report 10753115 (Version 7)
Quarter: 2021Q1

REPORT INFORMATION
  Report Type: Spontaneous
  Country: US (occurrence: US)
  Receive Date: 20150130
  Receipt Date: 20210202
  Transmission Date: 20210419
  Serious: No
  Sender: FDA-Public Use
  Company Number: US-PFIZER INC-2015037256

PATIENT
  Age: 46 Year
  Sex: Female
  Weight: 90.7 kg

DRUGS (4)
  1. VENLAFAXINE [Concomitant]
     Active Substance: VENLAFAXINE HYDROCHLORIDE
     Dosage: UNK, DAILY (100?250MG)
     Dates: start: 2013
  2. ACITRETIN. [Concomitant]
     Active Substance: ACITRETIN
     Dosage: UNK, DAILY (50?75 MG)
     Dates: start: 2012
  3. LYRICA [Suspect]
     Active Substance: PREGABALIN
     Indication: PAIN
  4. LYRICA [Suspect]
     Active Substance: PREGABALIN
     Indication: FIBROMYALGIA
     Dosage: 100 MG, 3X/DAY
     Dates: start: 2013

REACTIONS (6)
  - Hyperhidrosis [Unknown]
  - Feeling abnormal [Unknown]
  - Dyspnoea [Unknown]
  - Cold sweat [Unknown]
  - Head discomfort [Unknown]
  - Insomnia [Unknown]
